FAERS Safety Report 20962534 (Version 2)
Quarter: 2022Q3

REPORT INFORMATION
  Report Type: Spontaneous
  Country: US (occurrence: None)
  Receive Date: 20220615
  Receipt Date: 20220714
  Transmission Date: 20221027
  Serious: No
  Sender: FDA-Public Use
  Company Number: 2022A215185

PATIENT
  Age: 29101 Day
  Sex: Male
  Weight: 78 kg

DRUGS (3)
  1. BUDESONIDE\FORMOTEROL\GLYCOPYRRONIUM [Suspect]
     Active Substance: BUDESONIDE\FORMOTEROL\GLYCOPYRRONIUM
     Indication: Cough
     Dosage: 160/9/4.8 MCG TWO PUFFS TWO TIMES A DAY
     Route: 055
     Dates: start: 2022
  2. BUDESONIDE\FORMOTEROL\GLYCOPYRRONIUM [Suspect]
     Active Substance: BUDESONIDE\FORMOTEROL\GLYCOPYRRONIUM
     Indication: Asthma
     Dosage: 160/9/4.8 MCG TWO PUFFS TWO TIMES A DAY
     Route: 055
     Dates: start: 2022
  3. THE ORIGINAL NATURAL HERB COUGH DROPS [Concomitant]
     Active Substance: MENTHOL

REACTIONS (9)
  - Chest discomfort [Recovering/Resolving]
  - Wheezing [Recovering/Resolving]
  - Throat irritation [Recovering/Resolving]
  - Dyspnoea [Recovering/Resolving]
  - Emphysema [Not Recovered/Not Resolved]
  - Cough [Recovering/Resolving]
  - Chest pain [Recovering/Resolving]
  - Device use issue [Recovering/Resolving]
  - Drug hypersensitivity [Unknown]

NARRATIVE: CASE EVENT DATE: 20220608
